FAERS Safety Report 6987760-0 (Version None)
Quarter: 2010Q3

REPORT INFORMATION
  Report Type: 
  Country: None (occurrence: None)
  Receive Date: 20100916
  Receipt Date: 20100714
  Transmission Date: 20110219
  Serious: No
  Sender: FDA-Public Use
  Company Number: US-ABBOTT-10P-163-0658079-00

PATIENT
  Sex: Female
  Weight: 83.082 kg

DRUGS (11)
  1. TRILIPIX [Suspect]
     Indication: BLOOD CHOLESTEROL INCREASED
     Dates: start: 20090120
  2. VITAFOIL 10 [Concomitant]
     Indication: PRODUCT USED FOR UNKNOWN INDICATION
  3. RYTHMOL [Concomitant]
     Indication: ARRHYTHMIA
  4. LASIX [Concomitant]
     Indication: PRODUCT USED FOR UNKNOWN INDICATION
     Dosage: PRN
  5. VIT D [Concomitant]
     Indication: PRODUCT USED FOR UNKNOWN INDICATION
  6. SYNTHROID [Concomitant]
     Indication: HYPOTHYROIDISM
  7. K-DUR [Concomitant]
     Indication: PRODUCT USED FOR UNKNOWN INDICATION
     Dosage: 20MEQ IN AM AND  10MEQ IN PM
  8. PLAVIX [Concomitant]
     Indication: PRODUCT USED FOR UNKNOWN INDICATION
  9. ZYRTEC [Concomitant]
     Indication: HYPERSENSITIVITY
  10. ZEGERID [Concomitant]
     Indication: DYSPEPSIA
     Dosage: ORAL SUSPENSION
     Dates: start: 20100501, end: 20100707
  11. PEPCID [Concomitant]
     Indication: PRODUCT USED FOR UNKNOWN INDICATION

REACTIONS (2)
  - OESOPHAGEAL ULCER [None]
  - PRODUCT QUALITY ISSUE [None]
